FAERS Safety Report 6769465-4 (Version None)
Quarter: 2010Q2

REPORT INFORMATION
  Report Type: 
  Country: None (occurrence: None)
  Receive Date: 20100615
  Receipt Date: 20100609
  Transmission Date: 20101027
  Serious: Yes (Hospitalization)
  Sender: FDA-Public Use
  Company Number: IT-BAYER-201028188GPV

PATIENT
  Age: 27 Year
  Sex: Male

DRUGS (3)
  1. ASPIRIN [Suspect]
     Indication: OROPHARYNGEAL PAIN
     Dosage: TOTAL DAILY DOSE: 1 DF
     Route: 048
     Dates: start: 20100513, end: 20100513
  2. AMBROXOL [Suspect]
     Indication: OROPHARYNGEAL PAIN
     Dosage: TOTAL DAILY DOSE: 1 DF
     Route: 048
     Dates: start: 20100513, end: 20100513
  3. ZIMOX [Suspect]
     Indication: OROPHARYNGEAL PAIN
     Dosage: TOTAL DAILY DOSE: 1 DF
     Route: 048
     Dates: start: 20100513, end: 20100513

REACTIONS (2)
  - DYSPHONIA [None]
  - RASH PRURITIC [None]
